FAERS Safety Report 9006780 (Version 3)
Quarter: 2013Q1

REPORT INFORMATION
  Report Type: Spontaneous
  Country: US (occurrence: US)
  Receive Date: 20130110
  Receipt Date: 20130307
  Transmission Date: 20140127
  Serious: Yes (Other)
  Sender: FDA-Public Use
  Company Number: US-ASTRAZENECA-2013SE00906

PATIENT
  Age: 69 Year
  Sex: Female
  Weight: 42.6 kg

DRUGS (11)
  1. SYMBICORT [Suspect]
     Indication: CHRONIC OBSTRUCTIVE PULMONARY DISEASE
     Dosage: 160/4.5 MCG ONE PUFF TWO TIMES A DAY
     Route: 055
  2. SYMBICORT [Suspect]
     Indication: CHRONIC OBSTRUCTIVE PULMONARY DISEASE
     Dosage: 160/4.5 MCG TWO PUFF TWO TIMES A DAY
     Route: 055
     Dates: start: 2011
  3. LANSOPRAZOLE [Concomitant]
     Indication: GASTRIC DISORDER
     Route: 048
     Dates: start: 201206
  4. DOXYCYCLINE [Concomitant]
     Indication: BRONCHITIS
     Route: 048
     Dates: start: 201212, end: 201212
  5. LEVSIN [Concomitant]
     Indication: GASTRIC DISORDER
     Route: 048
  6. LEVSIN [Concomitant]
     Indication: GASTRIC DISORDER
     Dosage: ONCE EVERY WEEK OR TWO
  7. GENTAMICIN SULFATE [Concomitant]
     Indication: MUCOSAL INFLAMMATION
     Dates: start: 201212
  8. TRIAMTERENE [Concomitant]
     Indication: HYPERTENSION
     Dates: start: 2009
  9. ALTACE [Concomitant]
     Indication: HYPERTENSION
     Route: 048
     Dates: start: 2009
  10. AVELOX [Concomitant]
     Indication: BRONCHITIS
  11. CORTISONE [Concomitant]
     Indication: BRONCHITIS

REACTIONS (7)
  - Aortic aneurysm [Unknown]
  - Weight decreased [Unknown]
  - Bronchitis [Unknown]
  - Dyspnoea [Unknown]
  - Malaise [Unknown]
  - Off label use [Unknown]
  - Drug ineffective [Unknown]
